FAERS Safety Report 17043695 (Version 1)
Quarter: 2019Q4

REPORT INFORMATION
  Report Type: Spontaneous
  Country: FR (occurrence: FR)
  Receive Date: 20191118
  Receipt Date: 20191118
  Transmission Date: 20200122
  Serious: Yes (Hospitalization)
  Sender: FDA-Public Use
  Company Number: FR-PFIZER INC-2019492577

PATIENT
  Age: 15 Year
  Sex: Male

DRUGS (1)
  1. LYRICA [Suspect]
     Active Substance: PREGABALIN
     Dosage: 14 DF, 1X/DAY
     Route: 048

REACTIONS (7)
  - Off label use [Unknown]
  - Restlessness [Recovered/Resolved]
  - Intentional overdose [Recovered/Resolved]
  - Hallucination, auditory [Recovered/Resolved]
  - Hallucination, visual [Recovered/Resolved]
  - Product use issue [Unknown]
  - Coma [Recovered/Resolved]
